FAERS Safety Report 25051896 (Version 2)
Quarter: 2025Q2

REPORT INFORMATION
  Report Type: Report from Study
  Country: ZA (occurrence: ZA)
  Receive Date: 20250307
  Receipt Date: 20250529
  Transmission Date: 20250716
  Serious: Yes (Hospitalization, Other)
  Sender: TEVA
  Company Number: ZA-TEVA-VS-3305712

PATIENT
  Age: 26 Year
  Sex: Female
  Weight: 89.7 kg

DRUGS (1)
  1. COPAXONE [Suspect]
     Active Substance: GLATIRAMER ACETATE
     Indication: Multiple sclerosis
     Route: 058
     Dates: start: 20241213, end: 202504

REACTIONS (8)
  - Hyperemesis gravidarum [Not Recovered/Not Resolved]
  - Weight decreased [Unknown]
  - Haematemesis [Unknown]
  - Maternal exposure timing unspecified [Unknown]
  - Oesophageal perforation [Unknown]
  - Hiatus hernia [Unknown]
  - Blood iron decreased [Unknown]
  - Protein total decreased [Unknown]

NARRATIVE: CASE EVENT DATE: 20250101
